FAERS Safety Report 12222752 (Version 3)
Quarter: 2017Q3

REPORT INFORMATION
  Report Type: Report from Study
  Country: BR (occurrence: BR)
  Receive Date: 20160330
  Receipt Date: 20170905
  Transmission Date: 20171127
  Serious: Yes (Other)
  Sender: FDA-Public Use
  Company Number: PHHY2016BR042056

PATIENT
  Sex: Male
  Weight: 74 kg

DRUGS (3)
  1. TASIGNA [Suspect]
     Active Substance: NILOTINIB
     Dosage: 4 DF, QD (2 TABLETS IN THE MORNING AND 2 TABLETS IN THE AFTERNOON)
     Route: 048
  2. TASIGNA [Suspect]
     Active Substance: NILOTINIB
     Indication: CHRONIC MYELOID LEUKAEMIA
     Dosage: 2 DF, QD
     Route: 048
     Dates: start: 20131126
  3. TASIGNA [Suspect]
     Active Substance: NILOTINIB
     Dosage: 800 MG, BID
     Route: 048

REACTIONS (24)
  - Blood urea increased [Unknown]
  - Purulent discharge [Unknown]
  - Dry skin [Unknown]
  - Laziness [Unknown]
  - Kidney enlargement [Unknown]
  - Fatigue [Unknown]
  - Abdominal distension [Unknown]
  - Hypertension [Unknown]
  - Asthenia [Unknown]
  - Renal impairment [Unknown]
  - Swelling [Unknown]
  - Dysuria [Unknown]
  - Swelling face [Unknown]
  - Wrong drug administered [Unknown]
  - Secretion discharge [Unknown]
  - Feeling abnormal [Unknown]
  - Weight decreased [Unknown]
  - Malaise [Unknown]
  - Drug prescribing error [Unknown]
  - Prostatomegaly [Unknown]
  - Inappropriate schedule of drug administration [Unknown]
  - Blood creatinine increased [Unknown]
  - Diet refusal [Unknown]
  - Abdominal pain upper [Unknown]
